FAERS Safety Report 4448541-5 (Version None)
Quarter: 2004Q3

REPORT INFORMATION
  Report Type: 
  Country: None (occurrence: None)
  Receive Date: 20040909
  Receipt Date: 20040823
  Transmission Date: 20050211
  Serious: Yes (Hospitalization, Other)
  Sender: FDA-Public Use
  Company Number: DE_040814169

PATIENT
  Age: 65 Year
  Sex: Female

DRUGS (2)
  1. FORTEO [Suspect]
     Indication: OSTEOPOROSIS
     Dosage: 20 UG/DAY
     Dates: start: 20040301
  2. CALCIUM [Concomitant]

REACTIONS (8)
  - CONVULSION [None]
  - DEPRESSION [None]
  - DISORIENTATION [None]
  - FAECAL INCONTINENCE [None]
  - FALL [None]
  - MOUTH HAEMORRHAGE [None]
  - MYALGIA [None]
  - TONGUE BITING [None]
